FAERS Safety Report 16140576 (Version 2)
Quarter: 2019Q2

REPORT INFORMATION
  Report Type: Spontaneous
  Country: FR (occurrence: FR)
  Receive Date: 20190401
  Receipt Date: 20190404
  Transmission Date: 20190711
  Serious: Yes (Other)
  Sender: FDA-Public Use
  Company Number: FR-MYLANLABS-2019M1024880

PATIENT
  Age: 38 Year
  Sex: Male

DRUGS (34)
  1. DEXAMETHASONE. [Suspect]
     Active Substance: DEXAMETHASONE
     Indication: CENTRAL NERVOUS SYSTEM LYMPHOMA
     Dosage: FROM 4 COURSES OF R-DIAM AT 2ND RELAPSE, CONDITIONED BY BEAM-ARAC
     Route: 065
  2. ENDOXAN                            /00021101/ [Suspect]
     Active Substance: CYCLOPHOSPHAMIDE
     Indication: PRODUCT USED FOR UNKNOWN INDICATION
     Route: 065
  3. FILGRASTIM [Concomitant]
     Active Substance: FILGRASTIM
     Dosage: UNK
     Route: 065
  4. METHOTREXATE. [Suspect]
     Active Substance: METHOTREXATE
     Dosage: 3000 MILLIGRAM/SQ. METER, 2 CYCLES OF COPADEM INDUCTION
     Route: 065
  5. IFOSFAMIDE. [Suspect]
     Active Substance: IFOSFAMIDE
     Dosage: 4 COURSES OF R-DIAM (IFOSFAMIDE 1500 MG/M2 FROM D1-D5)
     Route: 065
  6. RITUXIMAB. [Suspect]
     Active Substance: RITUXIMAB
     Dosage: 4 COURSES OF R-DIAM (RITUXIMAB 375 MG/M2 IV AT D1)
     Route: 042
  7. CYTARABINE. [Suspect]
     Active Substance: CYTARABINE
     Dosage: 2 CYCLES OF CYM CONSOLIDATION   UNK
     Route: 037
  8. CYCLOPHOSPHAMIDE. [Suspect]
     Active Substance: CYCLOPHOSPHAMIDE
     Dosage: 60 MG/KG, ON DAY -3 AND -2
     Route: 065
  9. ENDOXAN                            /00021101/ [Suspect]
     Active Substance: CYCLOPHOSPHAMIDE
     Indication: STEM CELL TRANSPLANT
     Dosage: 250 MILLIGRAM PER SQUARE METRE,2 CYCLES OF COPADEM INDUCTION (250 MG/M2 EVERY 12 HOURS)
     Route: 065
  10. METHOTREXATE. [Suspect]
     Active Substance: METHOTREXATE
     Indication: CENTRAL NERVOUS SYSTEM LYMPHOMA
     Dosage: 3000 MILLIGRAM/SQ. METER, 2 CYCLES OF CYM CONSOLIDATION, 2 CYCLES OF COPADEM INDUCTION
     Route: 065
  11. METHOTREXATE. [Suspect]
     Active Substance: METHOTREXATE
     Dosage: 3 CYCLES OF DIAM AT 1ST RELAPSE
     Route: 037
  12. DEXAMETHASONE. [Suspect]
     Active Substance: DEXAMETHASONE
     Dosage: FROM 4 COURSES OF R-DIAM AT 2ND RELAPSE (40 MG D1 TO D4)
     Route: 065
  13. CYTARABINE. [Suspect]
     Active Substance: CYTARABINE
     Dosage: 2000 MILLIGRAM/SQ. METER, CONDITIONED BY BEAM-ARAC HIGH DOSE BEFORE ASCT, 2000 MG/M2 INFUSED
     Route: 042
  14. CYCLOPHOSPHAMIDE. [Suspect]
     Active Substance: CYCLOPHOSPHAMIDE
     Indication: CENTRAL NERVOUS SYSTEM LYMPHOMA
     Dosage: DEBULKING CHEMOTHERAPY
     Route: 065
  15. CYCLOPHOSPHAMIDE. [Suspect]
     Active Substance: CYCLOPHOSPHAMIDE
     Indication: STEM CELL TRANSPLANT
     Dosage: 250 MILLIGRAM/SQ. METER, BID
     Route: 065
  16. ENDOXAN                            /00021101/ [Suspect]
     Active Substance: CYCLOPHOSPHAMIDE
     Dosage: 60 MG/KG, ON DAY -3 AND -2 : 4737.50 UG X 2 DOSES IN TOTAL
     Route: 065
  17. LENOGRASTIM [Concomitant]
     Active Substance: LENOGRASTIM
     Dosage: 34 MUI/D, STARTING AT DAY 12 AFTER THE 2ND CYCLE OF R-DIAM
     Route: 065
  18. THIOTEPA. [Suspect]
     Active Substance: THIOTEPA
     Indication: PROPHYLAXIS AGAINST TRANSPLANT REJECTION
     Dosage: CONDITIONING THERAPY FOR SECOND ASCT
     Route: 065
  19. CYTARABINE. [Suspect]
     Active Substance: CYTARABINE
     Dosage: 100 MILLIGRAM/SQ. METER
  20. TIORFAN [Suspect]
     Active Substance: RACECADOTRIL
     Indication: PRODUCT USED FOR UNKNOWN INDICATION
     Route: 065
  21. FORTUM                             /00559701/ [Suspect]
     Active Substance: CEFTAZIDIME
     Indication: PRODUCT USED FOR UNKNOWN INDICATION
     Route: 065
  22. METHOTREXATE. [Suspect]
     Active Substance: METHOTREXATE
     Dosage: FROM 4 COURSES OF R-DIAM AT 2ND RELAPSE (15 MG)
     Route: 037
  23. THIOTEPA. [Suspect]
     Active Substance: THIOTEPA
     Indication: STEM CELL TRANSPLANT
     Dosage: 250 MG/M2 FROM DAY-9 TO -7
     Route: 065
  24. RITUXIMAB. [Suspect]
     Active Substance: RITUXIMAB
     Indication: CENTRAL NERVOUS SYSTEM LYMPHOMA
     Dosage: FROM 4 COURSES OF R-DIAM
     Route: 042
  25. CYTARABINE. [Suspect]
     Active Substance: CYTARABINE
     Indication: CENTRAL NERVOUS SYSTEM LYMPHOMA
     Dosage: 2 CYCLES OF COPADEM INDUCTION
     Route: 037
  26. BUSULFAN. [Suspect]
     Active Substance: BUSULFAN
     Indication: STEM CELL TRANSPLANT
     Dosage: 0.8 MG/KG, QID (4/DAY) FROM DAY -6 TO -4
     Route: 042
  27. METHOTREXATE. [Suspect]
     Active Substance: METHOTREXATE
     Dosage: 3000 MILLIGRAM/SQ. METER, 2 CYCLES OF CYM CONSOLIDATION, 3 CYCLES OF DIAM AT 1ST RELAPSE
     Route: 065
  28. CYTARABINE. [Suspect]
     Active Substance: CYTARABINE
     Dosage: 4 COURSES OF R-DIAM (CYTARABIN 1500 MG/M2 X 2 /DAY ON D1-D2)
     Route: 065
  29. CYCLOPHOSPHAMIDE. [Suspect]
     Active Substance: CYCLOPHOSPHAMIDE
     Dosage: 60 MILLIGRAM/KILOGRAM, NDITIONING THERAPY FOR SECOND ASCT
     Route: 065
  30. BUSULFAN. [Suspect]
     Active Substance: BUSULFAN
     Indication: PROPHYLAXIS AGAINST TRANSPLANT REJECTION
     Dosage: 0.8 MG/KG X 4, CONDITIONING THERAPY FOR SECOND ASCT
     Route: 042
  31. ENDOXAN                            /00021101/ [Suspect]
     Active Substance: CYCLOPHOSPHAMIDE
     Dosage: 60 MG/KGCONDITIONING THERAPY FOR SECOND ASCT (60 MG/KG)
     Route: 065
  32. METHOTREXATE. [Suspect]
     Active Substance: METHOTREXATE
     Dosage: FROM 4 COURSES OF R-DIAM AT 2ND RELAPSE (3000 MG/M2 ON D3)
     Route: 065
  33. CYTARABINE. [Suspect]
     Active Substance: CYTARABINE
     Dosage: FROM 4 COURSES OF R-DIAM AT 2ND RELAPSE
     Route: 065
  34. IFOSFAMIDE. [Suspect]
     Active Substance: IFOSFAMIDE
     Indication: CENTRAL NERVOUS SYSTEM LYMPHOMA
     Dosage: 3 CYCLES OF DIAM AT 1ST RELAPSE
     Route: 065

REACTIONS (3)
  - Mucosal inflammation [Recovering/Resolving]
  - Pseudomonal sepsis [Recovering/Resolving]
  - Enterobacter sepsis [Recovering/Resolving]
